FAERS Safety Report 25585687 (Version 2)
Quarter: 2025Q3

REPORT INFORMATION
  Report Type: Spontaneous
  Country: CA (occurrence: CA)
  Receive Date: 20250721
  Receipt Date: 20250825
  Transmission Date: 20251021
  Serious: Yes (Hospitalization, Other)
  Sender: PFIZER
  Company Number: CA-PFIZER INC-202500145541

PATIENT
  Age: 93 Year
  Sex: Male

DRUGS (4)
  1. VYNDAQEL [Interacting]
     Active Substance: TAFAMIDIS MEGLUMINE
     Indication: Cardiac amyloidosis
     Dosage: 80 MG, 1X/DAY
     Route: 048
     Dates: start: 20220319
  2. ATORVASTATIN [Interacting]
     Active Substance: ATORVASTATIN
     Indication: Cerebrovascular accident
     Dosage: 40 MG, 2X/DAY
     Route: 048
     Dates: start: 202401
  3. HYDROMORPHONE [Concomitant]
     Active Substance: HYDROMORPHONE
  4. BACLOFEN [Concomitant]
     Active Substance: BACLOFEN
     Indication: Back pain

REACTIONS (8)
  - Labelled drug-drug interaction medication error [Unknown]
  - Muscle spasms [Recovering/Resolving]
  - Myalgia [Unknown]
  - Immobile [Recovering/Resolving]
  - Hallucination [Unknown]
  - Rash [Unknown]
  - Fall [Recovering/Resolving]
  - Tremor [Unknown]

NARRATIVE: CASE EVENT DATE: 20250401
